FAERS Safety Report 14432358 (Version 3)
Quarter: 2019Q1

REPORT INFORMATION
  Report Type: Spontaneous
  Country: US (occurrence: US)
  Receive Date: 20180124
  Receipt Date: 20190318
  Transmission Date: 20190417
  Serious: Yes (Death)
  Sender: FDA-Public Use
  Company Number: US-PFIZER INC-2017545515

PATIENT
  Age: 43 Year
  Sex: Female
  Weight: 97.6 kg

DRUGS (3)
  1. DILANTIN [Suspect]
     Active Substance: PHENYTOIN
     Dosage: 300 MG, 2X/DAY (100 MG, ORALLY, (100 MG TAKE 3 CAPSULES TWICE A DAY)
     Route: 048
  2. CITALOPRAM [Concomitant]
     Active Substance: CITALOPRAM HYDROBROMIDE
     Dosage: 20 MG, DAILY (ONE TABLET DAILY)
  3. DILANTIN [Suspect]
     Active Substance: PHENYTOIN
     Indication: SEIZURE
     Dosage: 300 MG, 2X/DAY(100 MG TAKE 3 CAPSULES TWICE A DAY)
     Dates: start: 20171116

REACTIONS (2)
  - Death [Fatal]
  - Product dispensing error [Unknown]
